FAERS Safety Report 13226681 (Version 1)
Quarter: 2017Q1

REPORT INFORMATION
  Report Type: Report from Study
  Country: PE (occurrence: PE)
  Receive Date: 20170213
  Receipt Date: 20170213
  Transmission Date: 20170428
  Serious: Yes (Other)
  Sender: FDA-Public Use
  Company Number: PE-JNJFOC-20170208993

PATIENT
  Age: 48 Year
  Sex: Male
  Weight: 83 kg

DRUGS (1)
  1. SIMPONI [Suspect]
     Active Substance: GOLIMUMAB
     Indication: ANKYLOSING SPONDYLITIS
     Route: 058
     Dates: start: 20160531

REACTIONS (1)
  - Meningoencephalitis amoebic [Recovered/Resolved]

NARRATIVE: CASE EVENT DATE: 20170124
